FAERS Safety Report 23099607 (Version 1)
Quarter: 2023Q4

REPORT INFORMATION
  Report Type: Report from Study
  Country: US (occurrence: None)
  Receive Date: 20231024
  Receipt Date: 20231024
  Transmission Date: 20240109
  Serious: Yes (Hospitalization)
  Sender: FDA-Public Use
  Company Number: 2023A237087

PATIENT
  Age: 24682 Day
  Sex: Female

DRUGS (1)
  1. BRILINTA [Suspect]
     Active Substance: TICAGRELOR

REACTIONS (2)
  - Chest pain [Unknown]
  - Headache [Unknown]

NARRATIVE: CASE EVENT DATE: 20231012
